FAERS Safety Report 17389574 (Version 1)
Quarter: 2020Q1

REPORT INFORMATION
  Report Type: Spontaneous
  Country: US (occurrence: US)
  Receive Date: 20200123
  Receipt Date: 20200123
  Transmission Date: 20200409
  Serious: Yes (Hospitalization)
  Sender: FDA-Public Use
  Company Number: None

PATIENT
  Age: 75 Year
  Sex: Female

DRUGS (21)
  1. CETIRIZINE [Concomitant]
     Active Substance: CETIRIZINE HYDROCHLORIDE
  2. VITAMIN D3 [Concomitant]
     Active Substance: CHOLECALCIFEROL
  3. JANUVIA [Concomitant]
     Active Substance: SITAGLIPTIN PHOSPHATE
  4. MULTIPLE VIT [Concomitant]
  5. OMEPRAZOLE. [Concomitant]
     Active Substance: OMEPRAZOLE
  6. PROAIR HFA [Concomitant]
     Active Substance: ALBUTEROL SULFATE
  7. BUPRENORPHINE. [Suspect]
     Active Substance: BUPRENORPHINE
  8. ALBUTEROL. [Concomitant]
     Active Substance: ALBUTEROL
  9. IMIPRAMINE [Concomitant]
     Active Substance: IMIPRAMINE
  10. FLOVENT [Concomitant]
     Active Substance: FLUTICASONE PROPIONATE
  11. LOSARTAN/HCT [Concomitant]
     Active Substance: HYDROCHLOROTHIAZIDE\LOSARTAN POTASSIUM
  12. TUSSIN MAX [Concomitant]
  13. ESBRIET [Suspect]
     Active Substance: PIRFENIDONE
     Indication: IDIOPATHIC PULMONARY FIBROSIS
     Dosage: ?          OTHER DOSE:1 TAB;?
     Route: 048
     Dates: start: 20190822
  14. VOLTAREN [Concomitant]
     Active Substance: DICLOFENAC SODIUM
  15. BASAGLAR [Concomitant]
     Active Substance: INSULIN GLARGINE
  16. FLONASE ALGY [Concomitant]
  17. PROBIOTIC [Concomitant]
     Active Substance: PROBIOTICS NOS
  18. ATORVASTATIN [Concomitant]
     Active Substance: ATORVASTATIN
  19. GABAPENTIN. [Concomitant]
     Active Substance: GABAPENTIN
  20. NOVOLOG [Concomitant]
     Active Substance: INSULIN ASPART
  21. TYLENOL [Concomitant]
     Active Substance: ACETAMINOPHEN

REACTIONS (3)
  - Hypersensitivity [None]
  - Product dose omission [None]
  - Nausea [None]

NARRATIVE: CASE EVENT DATE: 201912
